FAERS Safety Report 12180429 (Version 2)
Quarter: 2016Q1

REPORT INFORMATION
  Report Type: Spontaneous
  Country: AU (occurrence: AU)
  Receive Date: 20160315
  Receipt Date: 20160317
  Transmission Date: 20160526
  Serious: Yes (Hospitalization)
  Sender: FDA-Public Use
  Company Number: AU-TOLMAR, INC.-2016AU002302

PATIENT
  Age: 95 Year
  Sex: Male

DRUGS (1)
  1. ELIGARD [Suspect]
     Active Substance: LEUPROLIDE ACETATE
     Indication: PROSTATE CANCER
     Dosage: 45 MG, EVERY 6 MONTHS
     Route: 065
     Dates: start: 20150326

REACTIONS (2)
  - Fall [Recovering/Resolving]
  - Femoral neck fracture [Recovering/Resolving]

NARRATIVE: CASE EVENT DATE: 201602
